FAERS Safety Report 6402035-6 (Version None)
Quarter: 2009Q4

REPORT INFORMATION
  Report Type: 
  Country: None (occurrence: None)
  Receive Date: 20091015
  Receipt Date: 20091005
  Transmission Date: 20100525
  Serious: Yes (Other)
  Sender: FDA-Public Use
  Company Number: JP-PFIZER INC-2009242063

PATIENT
  Age: 40 Year

DRUGS (11)
  1. SUNITINIB MALATE [Suspect]
     Indication: RENAL CELL CARCINOMA
     Dosage: 50 MG, 1X/DAY
     Route: 048
     Dates: start: 20090602, end: 20090629
  2. RINDERON [Concomitant]
     Dosage: UNK
     Route: 048
  3. GASTER [Concomitant]
     Dosage: UNK
     Route: 048
  4. FENTANYL [Concomitant]
     Dosage: UNK
     Route: 062
  5. OXYNORM [Concomitant]
     Dosage: UNK
     Route: 048
  6. FLAVITAN [Concomitant]
     Dosage: UNK
     Route: 048
  7. PYDOXAL [Concomitant]
     Dosage: UNK
     Route: 048
  8. PURSENNID [Concomitant]
     Dosage: UNK
     Route: 048
  9. SALICYLIC ACID [Concomitant]
     Dosage: 5%
     Route: 062
  10. ANTEBATE [Concomitant]
     Dosage: UNK
     Route: 062
  11. MOBIC [Concomitant]
     Dosage: UNK
     Route: 048
     Dates: start: 20090624

REACTIONS (1)
  - INTERSTITIAL LUNG DISEASE [None]
